FAERS Safety Report 13095224 (Version 2)
Quarter: 2018Q1

REPORT INFORMATION
  Report Type: Spontaneous
  Country: US (occurrence: US)
  Receive Date: 20170107
  Receipt Date: 20180111
  Transmission Date: 20180508
  Serious: No
  Sender: FDA-Public Use
  Company Number: US-DRREDDYS-USA/USA/16/0084774

PATIENT
  Age: 63 Year
  Sex: Female

DRUGS (1)
  1. HABITROL [Suspect]
     Active Substance: NICOTINE
     Indication: SMOKING CESSATION THERAPY
     Route: 061
     Dates: start: 20161108

REACTIONS (5)
  - Nausea [Unknown]
  - Dizziness [Unknown]
  - Overdose [Unknown]
  - Treatment noncompliance [Unknown]
  - Product quality issue [Unknown]
